FAERS Safety Report 7631911-1 (Version None)
Quarter: 2011Q3

REPORT INFORMATION
  Report Type: 
  Country: None (occurrence: None)
  Receive Date: 20110725
  Receipt Date: 20110531
  Transmission Date: 20111222
  Serious: No
  Sender: FDA-Public Use
  Company Number: US-BRISTOL-MYERS SQUIBB COMPANY-15725310

PATIENT
  Age: 81 Year
  Sex: Female
  Weight: 57 kg

DRUGS (4)
  1. ATENOLOL [Suspect]
  2. COUMADIN [Suspect]
     Indication: THROMBOSIS
     Route: 048
  3. COUMADIN [Suspect]
     Indication: PULMONARY EMBOLISM
     Route: 048
  4. HYZAAR [Suspect]

REACTIONS (2)
  - BALANCE DISORDER [None]
  - DIZZINESS [None]
